FAERS Safety Report 6648069-8 (Version None)
Quarter: 2010Q1

REPORT INFORMATION
  Report Type: 
  Country: None (occurrence: None)
  Receive Date: 20100324
  Receipt Date: 20100317
  Transmission Date: 20100710
  Serious: Yes (Other)
  Sender: FDA-Public Use
  Company Number: PHHY2010JP16833

PATIENT
  Age: 8 Year
  Sex: Male

DRUGS (2)
  1. CYCLOSPORINE [Suspect]
     Indication: NEPHROTIC SYNDROME
     Dosage: 2 MG/KG/DAY
     Route: 048
  2. PREDNISOLONE [Concomitant]
     Indication: NEPHROTIC SYNDROME
     Dosage: 1 MG/KG, UNK
     Route: 048

REACTIONS (6)
  - DISSEMINATED INTRAVASCULAR COAGULATION [None]
  - ENCEPHALITIS HERPES [None]
  - INTERSTITIAL LUNG DISEASE [None]
  - PANCREATITIS [None]
  - RENAL IMPAIRMENT [None]
  - VARICELLA [None]
